FAERS Safety Report 9079802 (Version 3)
Quarter: 2013Q3

REPORT INFORMATION
  Report Type: Spontaneous
  Country: FR (occurrence: FR)
  Receive Date: 20130215
  Receipt Date: 20130827
  Transmission Date: 20140515
  Serious: Yes (Hospitalization)
  Sender: FDA-Public Use
  Company Number: FR-GLAXOSMITHKLINE-B0866651A

PATIENT
  Age: 27 Year
  Sex: Female

DRUGS (4)
  1. BECOTIDE [Suspect]
     Indication: TRACHEITIS
     Dosage: 500MCG TWICE PER DAY
     Route: 055
     Dates: start: 20121218, end: 20121220
  2. JOSACINE [Suspect]
     Indication: TRACHEITIS
     Route: 048
     Dates: start: 20121217, end: 20121220
  3. PREDNISONE [Suspect]
     Indication: TRACHEITIS
     Dosage: 60MG PER DAY
     Route: 065
     Dates: start: 20121218, end: 20121220
  4. DOLIPRANE [Suspect]
     Indication: PRODUCT USED FOR UNKNOWN INDICATION
     Route: 048
     Dates: start: 20121217

REACTIONS (3)
  - Immune thrombocytopenic purpura [Recovering/Resolving]
  - Spontaneous haematoma [Unknown]
  - Off label use [Unknown]
